FAERS Safety Report 4841310-3 (Version None)
Quarter: 2005Q4

REPORT INFORMATION
  Report Type: 
  Country: None (occurrence: None)
  Receive Date: 20051130
  Receipt Date: 20051123
  Transmission Date: 20060501
  Serious: Yes (Hospitalization)
  Sender: FDA-Public Use
  Company Number: US-GLAXOSMITHKLINE-A0583291A

PATIENT
  Age: 63 Year
  Sex: Female

DRUGS (4)
  1. PAXIL CR [Suspect]
     Indication: DEPRESSION
     Dosage: 25MG PER DAY
     Route: 048
     Dates: start: 20050901
  2. LOMOTIL [Concomitant]
  3. SYNTHROID [Concomitant]
  4. AMBIEN [Concomitant]

REACTIONS (5)
  - DISORIENTATION [None]
  - INCOHERENT [None]
  - INCORRECT DOSE ADMINISTERED [None]
  - MEDICATION ERROR [None]
  - SYNCOPE [None]
